FAERS Safety Report 7401844-4 (Version None)
Quarter: 2011Q2

REPORT INFORMATION
  Report Type: 
  Country: None (occurrence: None)
  Receive Date: 20110408
  Receipt Date: 20110215
  Transmission Date: 20111010
  Serious: Yes (Hospitalization)
  Sender: FDA-Public Use
  Company Number: US-BAYER-201031247NA

PATIENT
  Age: 34 Year
  Sex: Female
  Weight: 85 kg

DRUGS (9)
  1. ALBUTEROL INHALER [Concomitant]
     Indication: ASTHMA
     Dosage: AS NEEDED
     Route: 048
     Dates: start: 20000101
  2. NEXIUM [Concomitant]
     Indication: PRODUCT USED FOR UNKNOWN INDICATION
     Route: 065
  3. FLUCONAZOLE [Concomitant]
     Indication: PRODUCT USED FOR UNKNOWN INDICATION
     Route: 048
     Dates: start: 20071025, end: 20090615
  4. ACETAMINOPHEN [Concomitant]
     Dosage: 2 TABLETS EVERY 6 HOURS AS NEEDED
     Route: 048
  5. ALBUTEROL [Concomitant]
     Indication: PRODUCT USED FOR UNKNOWN INDICATION
     Dosage: 1 DOSE EVERY 4 HOURS AS NEEDED
     Route: 048
     Dates: start: 20000101
  6. PAROXETINE HYDROCHLORIDE [Concomitant]
     Indication: PRODUCT USED FOR UNKNOWN INDICATION
     Route: 048
     Dates: start: 20081106
  7. YAZ [Suspect]
     Indication: CONTRACEPTION
     Route: 048
     Dates: start: 20070501, end: 20091015
  8. YAZ [Suspect]
     Indication: PREMENSTRUAL SYNDROME
  9. PREDNISONE [Concomitant]
     Indication: PRODUCT USED FOR UNKNOWN INDICATION
     Route: 065
     Dates: start: 20080903

REACTIONS (22)
  - ABDOMINAL PAIN UPPER [None]
  - VAGINAL DISCHARGE [None]
  - DRUG DOSE OMISSION [None]
  - HAEMANGIOMA OF LIVER [None]
  - DIARRHOEA [None]
  - WEIGHT DECREASED [None]
  - CONDITION AGGRAVATED [None]
  - TACHYARRHYTHMIA [None]
  - UTERINE LEIOMYOMA [None]
  - ENTEROCOLITIS [None]
  - ANXIETY [None]
  - PYLOROSPASM [None]
  - GALLBLADDER INJURY [None]
  - PEPTIC ULCER [None]
  - MENORRHAGIA [None]
  - EMOTIONAL DISTRESS [None]
  - COLITIS [None]
  - TREATMENT NONCOMPLIANCE [None]
  - BILIARY DYSKINESIA [None]
  - GASTRITIS [None]
  - EROSIVE OESOPHAGITIS [None]
  - IRRITABLE BOWEL SYNDROME [None]
